FAERS Safety Report 15221982 (Version 2)
Quarter: 2019Q3

REPORT INFORMATION
  Report Type: Report from Study
  Country: CA (occurrence: CA)
  Receive Date: 20180731
  Receipt Date: 20190722
  Transmission Date: 20191004
  Serious: Yes (Hospitalization, Disabling)
  Sender: FDA-Public Use
  Company Number: CA-ALLERGAN-1837308US

PATIENT
  Sex: Female

DRUGS (22)
  1. CITALOPRAM HYDROBROMIDE UNK [Suspect]
     Active Substance: CITALOPRAM HYDROBROMIDE
     Dosage: 20 MG, QD
     Route: 048
     Dates: start: 2012
  2. XOLAIR [Suspect]
     Active Substance: OMALIZUMAB
     Dosage: UNK, SINGLE
     Route: 065
     Dates: start: 20170906
  3. CITALOPRAM HYDROBROMIDE UNK [Suspect]
     Active Substance: CITALOPRAM HYDROBROMIDE
     Indication: ANXIETY
     Dosage: 1 DF, QD
     Route: 048
  4. VENTOLIN [Concomitant]
     Active Substance: ALBUTEROL SULFATE
     Indication: ASTHMA
     Dosage: 2 DF
     Route: 055
  5. CITALOPRAM HYDROBROMIDE UNK [Suspect]
     Active Substance: CITALOPRAM HYDROBROMIDE
     Dosage: 10 MG, QD
     Route: 048
     Dates: start: 2012
  6. XOLAIR [Suspect]
     Active Substance: OMALIZUMAB
     Dosage: UNK, SINGLE
     Route: 065
     Dates: start: 20171115
  7. AVAMYS [Concomitant]
     Active Substance: FLUTICASONE FUROATE
     Indication: NASAL CONGESTION
     Dosage: 4 DF
     Route: 045
  8. XOLAIR [Suspect]
     Active Substance: OMALIZUMAB
     Indication: ASTHMA
     Dosage: 375 MG, Q2WEEKS
     Route: 058
     Dates: start: 20180904
  9. XOLAIR [Suspect]
     Active Substance: OMALIZUMAB
     Dosage: UNK, SINGLE
     Route: 048
     Dates: start: 20180217
  10. XOLAIR [Suspect]
     Active Substance: OMALIZUMAB
     Dosage: UNK, SINGLE
     Route: 065
     Dates: start: 20171004
  11. XOLAIR [Suspect]
     Active Substance: OMALIZUMAB
     Dosage: 375 MG, BI-WEEKLY
     Route: 058
     Dates: start: 20170810
  12. BREO ELLIPTA [Concomitant]
     Active Substance: FLUTICASONE FUROATE\VILANTEROL TRIFENATATE
     Indication: ASTHMA
     Dosage: 1 DF
     Route: 055
  13. BUPROPION HYDROCHLORIDE. [Concomitant]
     Active Substance: BUPROPION HYDROCHLORIDE
     Indication: ANXIETY
  14. XOLAIR [Suspect]
     Active Substance: OMALIZUMAB
     Dosage: UNK, SINGLE
     Route: 065
     Dates: start: 20171101
  15. XOLAIR [Suspect]
     Active Substance: OMALIZUMAB
     Dosage: UNK, SINGLE
     Route: 065
     Dates: start: 20170823
  16. XOLAIR [Suspect]
     Active Substance: OMALIZUMAB
     Dosage: UNK, SINGLE
     Route: 048
     Dates: start: 20180221
  17. XOLAIR [Suspect]
     Active Substance: OMALIZUMAB
     Dosage: UNK, SINGLE
     Route: 065
     Dates: start: 20180126
  18. ACETAMINOPHEN/CAFFEINE CITRATE/CODEINE PHOSPHATE [Concomitant]
     Active Substance: ACETAMINOPHEN\CAFFEINE\CODEINE PHOSPHATE
     Indication: ARTHRITIS
     Dosage: 1 DF
     Route: 048
  19. UMECLIDINIUM BROMIDE [Concomitant]
     Active Substance: UMECLIDINIUM BROMIDE
     Indication: ASTHMA
     Dosage: 1 DF
     Route: 055
  20. BUPROPION HYDROCHLORIDE. [Concomitant]
     Active Substance: BUPROPION HYDROCHLORIDE
     Indication: DEPRESSION
     Dosage: 1 DF
     Route: 048
  21. SINGULAIR [Concomitant]
     Active Substance: MONTELUKAST SODIUM
     Indication: ASTHMA
     Dosage: 1 DF
     Route: 048
  22. TIAZAC [Concomitant]
     Active Substance: DILTIAZEM HYDROCHLORIDE
     Indication: HYPERTENSION
     Dosage: 1 DF
     Route: 048

REACTIONS (11)
  - Sleep disorder [Recovering/Resolving]
  - Bronchitis [Not Recovered/Not Resolved]
  - Eye injury [Not Recovered/Not Resolved]
  - Blood pressure increased [Not Recovered/Not Resolved]
  - Cough [Recovering/Resolving]
  - Respiratory rate increased [Not Recovered/Not Resolved]
  - Nasopharyngitis [Not Recovered/Not Resolved]
  - Ligament sprain [Recovering/Resolving]
  - Nasal congestion [Unknown]
  - Oedema [Unknown]
  - Inappropriate schedule of product administration [Unknown]

NARRATIVE: CASE EVENT DATE: 20160221
